FAERS Safety Report 9972428 (Version 1)
Quarter: 2014Q1

REPORT INFORMATION
  Report Type: Spontaneous
  Country: US (occurrence: None)
  Receive Date: 20140127
  Receipt Date: 20140127
  Transmission Date: 20141002
  Serious: Yes (Other)
  Sender: FDA-Public Use
  Company Number: 1242429

PATIENT
  Sex: Female

DRUGS (2)
  1. RITUXAN (RITUXIMAB) [Suspect]
     Indication: COLD TYPE HAEMOLYTIC ANAEMIA
     Dosage: LAST DOSE RECEIVED ON 18 JUN 2013, UNKNOWN
  2. RITUXAN (RITUXIMAB) [Suspect]
     Indication: OFF LABEL USE
     Dosage: LAST DOSE RECEIVED ON 18 JUN 2013, UNKNOWN

REACTIONS (1)
  - Neutropenia [None]
